FAERS Safety Report 7475745-X (Version None)
Quarter: 2011Q2

REPORT INFORMATION
  Report Type: 
  Country: None (occurrence: None)
  Receive Date: 20110504
  Receipt Date: 20110420
  Transmission Date: 20111010
  Serious: Yes (Other)
  Sender: FDA-Public Use
  Company Number: 031711

PATIENT
  Age: 37 Year
  Sex: Female

DRUGS (2)
  1. CARBAMAZEPINE [Suspect]
     Indication: EPILEPSY
     Dosage: 1800
  2. LACOSAMIDE [Suspect]
     Indication: EPILEPSY
     Dosage: 400

REACTIONS (1)
  - CONVULSION [None]
